FAERS Safety Report 9592559 (Version 1)
Quarter: 2013Q3

REPORT INFORMATION
  Report Type: Spontaneous
  Country: US (occurrence: None)
  Receive Date: 20130927
  Receipt Date: 20130927
  Transmission Date: 20140515
  Serious: No
  Sender: FDA-Public Use
  Company Number: CABO-13002778

PATIENT
  Age: 58 Year
  Sex: Female

DRUGS (6)
  1. COMETRIQ (CABOZANTINIB) CAPSULE [Suspect]
     Indication: THYROID CANCER
     Dosage: 100 MG QD ORAL
     Dates: start: 20130518, end: 20130711
  2. SYNTHROID (LEVOTHYROXINE SODIUM) [Concomitant]
  3. VITAMINS [Concomitant]
  4. CALCITROL (CALCITRIOL) [Concomitant]
  5. CALCIUM (CALCIUM CHLORIDE HEXAHYDRATE) [Concomitant]
  6. COLESTIPOL (COLESTIPOL) [Concomitant]

REACTIONS (7)
  - Thyroid disorder [None]
  - Diarrhoea [None]
  - Fatigue [None]
  - Constipation [None]
  - Pain in extremity [None]
  - Chapped lips [None]
  - Hypoaesthesia [None]
